FAERS Safety Report 7249245-6 (Version None)
Quarter: 2011Q1

REPORT INFORMATION
  Report Type: 
  Country: None (occurrence: None)
  Receive Date: 20110128
  Receipt Date: 20101116
  Transmission Date: 20110831
  Serious: Yes (Hospitalization)
  Sender: FDA-Public Use
  Company Number: US-BAYER-201022901NA

PATIENT
  Sex: Female
  Weight: 68.027 kg

DRUGS (12)
  1. YAZ [Suspect]
     Indication: PREMENSTRUAL SYNDROME
  2. YASMIN [Suspect]
     Indication: PREMENSTRUAL SYNDROME
  3. ANTIBIOTICS [Concomitant]
  4. FENTANYL [Concomitant]
     Indication: PAIN
  5. CEFEPIME [Concomitant]
  6. ASPIRIN [Concomitant]
     Indication: HEADACHE
     Dosage: 3 DF, PRN
  7. TORADOL [Concomitant]
     Indication: PAIN
     Dosage: UNK
     Dates: start: 20080528
  8. YAZ [Suspect]
     Indication: CONTRACEPTION
     Dosage: UNK
     Route: 048
     Dates: start: 20061101
  9. YASMIN [Suspect]
     Indication: CONTRACEPTION
     Dosage: UNK
     Route: 048
     Dates: start: 20050101, end: 20080528
  10. FLAGYL [Concomitant]
  11. ANTIBIOTICS [Concomitant]
     Indication: DIARRHOEA INFECTIOUS
     Dosage: UNK
     Dates: start: 20080101
  12. ADVAIR [Concomitant]
     Dosage: UNK
     Dates: start: 20060101, end: 20080101

REACTIONS (3)
  - HEADACHE [None]
  - SUPERIOR SAGITTAL SINUS THROMBOSIS [None]
  - TRANSVERSE SINUS THROMBOSIS [None]
